FAERS Safety Report 5882723-0 (Version None)
Quarter: 2008Q3

REPORT INFORMATION
  Report Type: 
  Country: None (occurrence: None)
  Receive Date: 20080913
  Receipt Date: 20080815
  Transmission Date: 20090109
  Serious: No
  Sender: FDA-Public Use
  Company Number: US-ABBOTT-08P-163-0471011-00

PATIENT
  Sex: Female
  Weight: 15.89 kg

DRUGS (4)
  1. HUMIRA [Suspect]
     Indication: JUVENILE ARTHRITIS
     Route: 058
     Dates: start: 20080620, end: 20080816
  2. HUMIRA [Suspect]
     Route: 058
     Dates: start: 20080816
  3. PREDNISONE TAB [Concomitant]
     Indication: JUVENILE ARTHRITIS
     Route: 048
  4. METHOTREXATE [Concomitant]
     Indication: JUVENILE ARTHRITIS

REACTIONS (3)
  - ARTHRALGIA [None]
  - ARTHRITIS [None]
  - DRUG INEFFECTIVE [None]
